FAERS Safety Report 8357174-X (Version None)
Quarter: 2012Q2

REPORT INFORMATION
  Report Type: 
  Country: None (occurrence: None)
  Receive Date: 20120514
  Receipt Date: 20120509
  Transmission Date: 20120825
  Serious: Yes (Death, Other)
  Sender: FDA-Public Use
  Company Number: US-PFIZER INC-2009308066

PATIENT
  Sex: Male

DRUGS (10)
  1. TOPROL-XL [Concomitant]
     Dosage: 25 MG, 1X/DAY
     Route: 048
  2. TAMSULOSIN [Concomitant]
     Dosage: 0.4 MG, UNK
     Route: 048
  3. LISINOPRIL [Concomitant]
     Dosage: 2.5 MG, UNK
     Route: 048
  4. ASPIRIN [Concomitant]
     Dosage: 81 MG, 1X/DAY
     Route: 048
  5. CIPROFLOXACIN [Concomitant]
     Dosage: 500 MG, UNK
     Route: 048
  6. LIPITOR [Concomitant]
     Dosage: 40 MG, 1X/DAY
     Route: 048
  7. DIGOXIN [Concomitant]
     Dosage: 0.625 MG, UNK
     Route: 048
  8. PRILOSEC [Concomitant]
     Dosage: UNK
  9. DILANTIN [Suspect]
     Indication: CONVULSION
     Dosage: 100 MG, 3X/DAY
     Route: 048
     Dates: start: 20060714
  10. AMIODARONE [Concomitant]
     Dosage: 200 MG, 1X/DAY

REACTIONS (2)
  - STEVENS-JOHNSON SYNDROME [None]
  - TOXIC EPIDERMAL NECROLYSIS [None]
